FAERS Safety Report 8300109-6 (Version None)
Quarter: 2012Q2

REPORT INFORMATION
  Report Type: 
  Country: None (occurrence: None)
  Receive Date: 20120420
  Receipt Date: 20120416
  Transmission Date: 20120825
  Serious: No
  Sender: FDA-Public Use
  Company Number: US-PFIZER INC-2012094952

PATIENT
  Sex: Male

DRUGS (1)
  1. LIPITOR [Suspect]
     Dosage: UNK
     Dates: end: 20120201

REACTIONS (2)
  - IMPAIRED WORK ABILITY [None]
  - MUSCULOSKELETAL PAIN [None]
